FAERS Safety Report 11904814 (Version 1)
Quarter: 2016Q1

REPORT INFORMATION
  Report Type: Spontaneous
  Country: US (occurrence: US)
  Receive Date: 20160108
  Receipt Date: 20160108
  Transmission Date: 20160526
  Serious: No
  Sender: FDA-Public Use
  Company Number: US-ROCHE-1555783

PATIENT
  Sex: Female

DRUGS (1)
  1. ACTIVASE [Suspect]
     Active Substance: ALTEPLASE
     Indication: VENOUS OCCLUSION
     Dosage: 1 MG 2-3 TIMES WEEKLY
     Route: 065

REACTIONS (1)
  - Venous occlusion [Unknown]
